FAERS Safety Report 17206750 (Version 1)
Quarter: 2019Q4

REPORT INFORMATION
  Report Type: Spontaneous
  Country: US (occurrence: US)
  Receive Date: 20191227
  Receipt Date: 20191227
  Transmission Date: 20200122
  Serious: Yes (Death, Life-Threatening, Hospitalization, Other)
  Sender: FDA-Public Use
  Company Number: US-SCIEGEN PHARMACEUTICALS INC-2019SCILIT00386

PATIENT
  Age: 74 Year
  Sex: Female

DRUGS (4)
  1. VASOPRESSOR [Interacting]
     Active Substance: UNSPECIFIED INGREDIENT
  2. METFORMIN HYDROCHLORIDETABLETS [Suspect]
     Active Substance: METFORMIN HYDROCHLORIDE
  3. N-ACETYLCYSTEINE [Interacting]
     Active Substance: ACETYLCYSTEINE
  4. ACETAMINOPHEN. [Suspect]
     Active Substance: ACETAMINOPHEN

REACTIONS (8)
  - Electrocardiogram QT prolonged [Unknown]
  - Metabolic acidosis [Unknown]
  - Osmolar gap [Unknown]
  - Delirium [Unknown]
  - Hepatotoxicity [Unknown]
  - Toxicity to various agents [Fatal]
  - Hypotension [Unknown]
  - Anion gap [Unknown]
